FAERS Safety Report 4272657-X (Version None)
Quarter: 2004Q1

REPORT INFORMATION
  Report Type: 
  Country: None (occurrence: None)
  Receive Date: 20040115
  Receipt Date: 20040115
  Transmission Date: 20041129
  Serious: Yes (Death)
  Sender: FDA-Public Use
  Company Number: None

PATIENT
  Age: 68 Year
  Sex: Male

DRUGS (1)
  1. IRBESARTAN [Suspect]
     Indication: HYPERTENSION
     Dosage: 2 -} 4 WEEKS

REACTIONS (1)
  - ANGIONEUROTIC OEDEMA [None]
